FAERS Safety Report 8909473 (Version 1)
Quarter: 2012Q4

REPORT INFORMATION
  Report Type: Spontaneous
  Country: JP (occurrence: None)
  Receive Date: 20121109
  Receipt Date: 20121109
  Transmission Date: 20130627
  Serious: Yes (Other)
  Sender: FDA-Public Use
  Company Number: ADR-2012-02041

PATIENT
  Sex: Male

DRUGS (1)
  1. GABALON [Suspect]

REACTIONS (5)
  - Activities of daily living impaired [None]
  - Muscle spasticity [None]
  - Movement disorder [None]
  - Amyotrophic lateral sclerosis [None]
  - Disease progression [None]
